FAERS Safety Report 5471308-6 (Version None)
Quarter: 2007Q3

REPORT INFORMATION
  Report Type: 
  Country: None (occurrence: None)
  Receive Date: 20070928
  Receipt Date: 20070917
  Transmission Date: 20080115
  Serious: Yes (Other)
  Sender: FDA-Public Use
  Company Number: GB-PFIZER INC-2007077754

PATIENT
  Age: 58 Year
  Sex: Male
  Weight: 127 kg

DRUGS (11)
  1. CHAMPIX [Suspect]
     Indication: SMOKING CESSATION THERAPY
     Dates: start: 20070802, end: 20070814
  2. AMIODARONE HCL [Concomitant]
     Indication: ATRIAL FIBRILLATION
  3. AMITRIPTYLINE HCL [Concomitant]
     Indication: INSOMNIA
  4. BISOPROLOL [Concomitant]
     Indication: MYOCARDIAL ISCHAEMIA
  5. CANDESARTAN CILEXETIL [Concomitant]
     Indication: MYOCARDIAL ISCHAEMIA
  6. DIGOXIN [Concomitant]
     Indication: ATRIAL FIBRILLATION
  7. LANSOPRAZOLE [Concomitant]
     Indication: GASTROOESOPHAGEAL REFLUX DISEASE
     Route: 048
  8. SIMVASTATIN [Concomitant]
     Indication: MYOCARDIAL ISCHAEMIA
     Route: 048
  9. SIMVASTATIN [Concomitant]
     Indication: CARDIAC FAILURE CONGESTIVE
  10. SPIRONOLACTONE [Concomitant]
     Indication: CARDIAC FAILURE CONGESTIVE
     Route: 048
  11. WARFARIN [Concomitant]
     Indication: ATRIAL FIBRILLATION
     Route: 048

REACTIONS (3)
  - HAEMORRHAGE [None]
  - INTERNATIONAL NORMALISED RATIO INCREASED [None]
  - INTRA-ABDOMINAL HAEMATOMA [None]
